FAERS Safety Report 7477524-6 (Version None)
Quarter: 2011Q2

REPORT INFORMATION
  Report Type: 
  Country: None (occurrence: None)
  Receive Date: 20110513
  Receipt Date: 20110318
  Transmission Date: 20111010
  Serious: Yes (Other)
  Sender: FDA-Public Use
  Company Number: CN-JNJFOC-20110501899

PATIENT

DRUGS (1)
  1. SPORANOX [Suspect]
     Indication: PRODUCT USED FOR UNKNOWN INDICATION
     Route: 042

REACTIONS (4)
  - INFUSION RELATED REACTION [None]
  - LIQUID PRODUCT PHYSICAL ISSUE [None]
  - ASTHMA [None]
  - DYSPHORIA [None]
